FAERS Safety Report 11061609 (Version 1)
Quarter: 2015Q2

REPORT INFORMATION
  Report Type: Spontaneous
  Country: US (occurrence: None)
  Receive Date: 20150423
  Receipt Date: 20150423
  Transmission Date: 20150821
  Serious: Yes (Other)
  Sender: FDA-Public Use
  Company Number: None

PATIENT
  Age: 6 Year
  Sex: Male
  Weight: 22.68 kg

DRUGS (2)
  1. METHYLPHENIDATE ER [Suspect]
     Active Substance: METHYLPHENIDATE
     Indication: ATTENTION DEFICIT/HYPERACTIVITY DISORDER
     Dosage: 730AM + 1PM
     Route: 048
     Dates: start: 20150327
  2. MELATONIN [Concomitant]
     Active Substance: MELATONIN

REACTIONS (2)
  - Mood swings [None]
  - Crying [None]
